FAERS Safety Report 8327240-3 (Version None)
Quarter: 2012Q2

REPORT INFORMATION
  Report Type: 
  Country: None (occurrence: None)
  Receive Date: 20120501
  Receipt Date: 20120418
  Transmission Date: 20120825
  Serious: Yes (Disabling, Other)
  Sender: FDA-Public Use
  Company Number: FR-AMGEN-FRASP2012009354

PATIENT
  Age: 15 Year
  Sex: Female
  Weight: 40 kg

DRUGS (6)
  1. METHOTREXATE [Concomitant]
     Indication: ARTHRITIS
     Dosage: UNK
     Dates: start: 20070101
  2. ENBREL [Suspect]
     Dosage: UNK
     Route: 058
     Dates: start: 20111103, end: 20120309
  3. NSAID'S [Concomitant]
     Dosage: UNK
  4. ENBREL [Suspect]
     Indication: JUVENILE ARTHRITIS
     Dosage: UNK
     Dates: start: 20090101
  5. METHOTREXATE [Concomitant]
     Dosage: 20 MG, WEEKLY
     Route: 048
     Dates: start: 20090101
  6. ENBREL [Suspect]
     Dosage: 35 MG, WEEKLY
     Route: 058
     Dates: start: 20110218

REACTIONS (4)
  - LOCAL SWELLING [None]
  - PYREXIA [None]
  - NECK PAIN [None]
  - MYOSITIS [None]
